FAERS Safety Report 13042883 (Version 1)
Quarter: 2016Q4

REPORT INFORMATION
  Report Type: Spontaneous
  Country: US (occurrence: US)
  Receive Date: 20161219
  Receipt Date: 20161219
  Transmission Date: 20170207
  Serious: No
  Sender: FDA-Public Use
  Company Number: US-JAZZ-2016-US-022590

PATIENT
  Sex: Male

DRUGS (35)
  1. BENADRYL ALLERGY [Concomitant]
     Active Substance: DIPHENHYDRAMINE HYDROCHLORIDE
  2. CYMBALTA [Concomitant]
     Active Substance: DULOXETINE HYDROCHLORIDE
  3. LISINOPRIL + HIDROCLOROTIAZIDA [Concomitant]
     Active Substance: HYDROCHLOROTHIAZIDE\LISINOPRIL
  4. INTERMEZZO [Concomitant]
     Active Substance: ZOLPIDEM TARTRATE
  5. VICTOZA [Concomitant]
     Active Substance: LIRAGLUTIDE
  6. DEXTROAMPHETAMINE                  /00016601/ [Concomitant]
     Active Substance: DEXTROAMPHETAMINE
  7. DIAZEPAM. [Concomitant]
     Active Substance: DIAZEPAM
  8. GABAPENTIN. [Concomitant]
     Active Substance: GABAPENTIN
  9. HYDROCORTISONE ACETATE. [Concomitant]
     Active Substance: HYDROCORTISONE ACETATE
  10. METHADONE [Concomitant]
     Active Substance: METHADONE HYDROCHLORIDE
  11. XYREM [Suspect]
     Active Substance: SODIUM OXYBATE
     Indication: SLEEP DISORDER
     Dosage: 3 G, BID
     Route: 048
     Dates: start: 200511, end: 2006
  12. ABILIFY [Concomitant]
     Active Substance: ARIPIPRAZOLE
  13. SONATA                             /00061001/ [Concomitant]
  14. TRAZODONE [Concomitant]
     Active Substance: TRAZODONE HYDROCHLORIDE
  15. XANAX [Suspect]
     Active Substance: ALPRAZOLAM
     Indication: PRODUCT USED FOR UNKNOWN INDICATION
  16. TOPAMAX [Concomitant]
     Active Substance: TOPIRAMATE
  17. CYCLOBENZAPRINE [Concomitant]
     Active Substance: CYCLOBENZAPRINE
  18. LISINOPRIL. [Concomitant]
     Active Substance: LISINOPRIL
  19. ZOLOFT [Concomitant]
     Active Substance: SERTRALINE HYDROCHLORIDE
  20. XYREM [Suspect]
     Active Substance: SODIUM OXYBATE
     Dosage: 4.5G, BID
     Route: 048
     Dates: start: 201606
  21. REXULTI [Concomitant]
     Active Substance: BREXPIPRAZOLE
  22. LUNESTA [Concomitant]
     Active Substance: ESZOPICLONE
  23. LIOTHYRONINE SOD. [Concomitant]
  24. KLONOPIN [Concomitant]
     Active Substance: CLONAZEPAM
  25. AMBIEN [Concomitant]
     Active Substance: ZOLPIDEM TARTRATE
  26. SOMA [Concomitant]
     Active Substance: CARISOPRODOL
  27. CHORIONIC GONADOTR [Concomitant]
  28. FLUCONAZOLE. [Concomitant]
     Active Substance: FLUCONAZOLE
  29. BACLOFEN. [Concomitant]
     Active Substance: BACLOFEN
  30. XYREM [Suspect]
     Active Substance: SODIUM OXYBATE
     Dosage: DOSE ADJUSTMENT
     Route: 048
     Dates: start: 200608, end: 2016
  31. AMBIEN CR [Concomitant]
     Active Substance: ZOLPIDEM TARTRATE
  32. DOXEPIN HCL [Concomitant]
     Active Substance: DOXEPIN HYDROCHLORIDE
  33. PROPRANOLOL [Concomitant]
     Active Substance: PROPRANOLOL\PROPRANOLOL HYDROCHLORIDE
  34. VITAMIN B12 [Concomitant]
     Active Substance: CYANOCOBALAMIN
  35. FLORINEF ACETATE [Concomitant]
     Active Substance: FLUDROCORTISONE ACETATE

REACTIONS (2)
  - Drug interaction [Unknown]
  - Anxiety [Unknown]
